FAERS Safety Report 11401643 (Version 2)
Quarter: 2015Q3

REPORT INFORMATION
  Report Type: Spontaneous
  Country: US (occurrence: US)
  Receive Date: 20150821
  Receipt Date: 20150915
  Transmission Date: 20151125
  Serious: No
  Sender: FDA-Public Use
  Company Number: US-AMGEN-USASP2015084727

PATIENT
  Age: 64 Year
  Sex: Male
  Weight: 123.81 kg

DRUGS (3)
  1. MISOPROSTOL. [Concomitant]
     Active Substance: MISOPROSTOL
     Indication: SPONDYLOARTHROPATHY
     Dosage: 200 MG, TID
  2. DICLOFENAC [Concomitant]
     Active Substance: DICLOFENAC
     Indication: SPONDYLOARTHROPATHY
     Dosage: 50 MG, TID
     Route: 048
  3. ENBREL [Suspect]
     Active Substance: ETANERCEPT
     Indication: RHEUMATOID ARTHRITIS
     Dosage: 25 MG, 2 TIMES/WK
     Route: 058
     Dates: start: 20150805, end: 2015

REACTIONS (3)
  - Pain [Unknown]
  - Arthritis [Unknown]
  - Arthralgia [Recovered/Resolved]

NARRATIVE: CASE EVENT DATE: 20150816
